FAERS Safety Report 7479039-8 (Version None)
Quarter: 2011Q2

REPORT INFORMATION
  Report Type: 
  Country: None (occurrence: None)
  Receive Date: 20110513
  Receipt Date: 20110504
  Transmission Date: 20111010
  Serious: Yes (Hospitalization)
  Sender: FDA-Public Use
  Company Number: PHHY2011US38264

PATIENT
  Age: 72 Year
  Sex: Female

DRUGS (4)
  1. FUROSEMIDE [Concomitant]
  2. HYDRALAZINE HCL [Suspect]
  3. METOPROLOL SUCCINATE [Suspect]
  4. LISINOPRIL [Concomitant]

REACTIONS (11)
  - OEDEMA PERIPHERAL [None]
  - PRURITUS [None]
  - DEEP VEIN THROMBOSIS [None]
  - PAIN IN EXTREMITY [None]
  - SKIN DISCOLOURATION [None]
  - CUTANEOUS LUPUS ERYTHEMATOSUS [None]
  - ERYTHEMA [None]
  - SKIN WARM [None]
  - SKIN PLAQUE [None]
  - RASH [None]
  - ALOPECIA [None]
